FAERS Safety Report 10267001 (Version 1)
Quarter: 2014Q2

REPORT INFORMATION
  Report Type: Report from Study
  Country: US (occurrence: US)
  Receive Date: 20140630
  Receipt Date: 20140630
  Transmission Date: 20141212
  Serious: Yes (Other)
  Sender: FDA-Public Use
  Company Number: US-BRISTOL-MYERS SQUIBB COMPANY-21077334

PATIENT
  Sex: Female

DRUGS (1)
  1. ORENCIA [Suspect]
     Route: 042

REACTIONS (1)
  - Arthropathy [Unknown]
